FAERS Safety Report 7657220-2 (Version None)
Quarter: 2011Q3

REPORT INFORMATION
  Report Type: 
  Country: None (occurrence: None)
  Receive Date: 20110804
  Receipt Date: 20110729
  Transmission Date: 20111222
  Serious: Yes (Other)
  Sender: FDA-Public Use
  Company Number: US-SANOFI-AVENTIS-2011SA048940

PATIENT
  Sex: Male

DRUGS (2)
  1. PLAVIX [Suspect]
     Route: 048
     Dates: start: 20090101
  2. PROZAC [Interacting]
     Route: 065
     Dates: start: 20080101

REACTIONS (4)
  - PANIC ATTACK [None]
  - PALPITATIONS [None]
  - TREMOR [None]
  - DRUG INTERACTION [None]
